FAERS Safety Report 7945055-2 (Version None)
Quarter: 2011Q4

REPORT INFORMATION
  Report Type: 
  Country: None (occurrence: None)
  Receive Date: 20111129
  Receipt Date: 20111124
  Transmission Date: 20120403
  Serious: Yes (Other)
  Sender: FDA-Public Use
  Company Number: CA-PFIZER INC-2011244948

PATIENT
  Age: 26 Year
  Sex: Female
  Weight: 48 kg

DRUGS (2)
  1. PRISTIQ [Suspect]
     Indication: MAJOR DEPRESSION
     Dosage: 100 MG, 1X/DAY
     Route: 048
     Dates: start: 20100113, end: 20110602
  2. YASMIN [Concomitant]
     Indication: CONTRACEPTION
     Dosage: UNK, 1X/DAY
     Dates: start: 20050101

REACTIONS (3)
  - ALCOHOL POISONING [None]
  - ALCOHOL INTERACTION [None]
  - IMPAIRED DRIVING ABILITY [None]
